FAERS Safety Report 10478322 (Version 4)
Quarter: 2014Q4

REPORT INFORMATION
  Report Type: Spontaneous
  Country: JP (occurrence: JP)
  Receive Date: 20140926
  Receipt Date: 20141124
  Transmission Date: 20150528
  Serious: Yes (Other)
  Sender: FDA-Public Use
  Company Number: JP-PFIZER INC-2014264299

PATIENT
  Age: 79 Year
  Sex: Male

DRUGS (12)
  1. GASMOTIN [Suspect]
     Active Substance: MOSAPRIDE CITRATE
     Dosage: UNK
     Route: 048
  2. LIVALO [Concomitant]
     Active Substance: PITAVASTATIN CALCIUM
     Route: 048
  3. FRANDOL [Concomitant]
     Active Substance: ISOSORBIDE DINITRATE
     Route: 048
  4. ANPLAG [Concomitant]
     Active Substance: SARPOGRELATE
     Route: 048
  5. COVERSYL [Concomitant]
     Active Substance: PERINDOPRIL
     Route: 048
  6. DORNER [Suspect]
     Active Substance: BERAPROST SODIUM
     Dosage: UNK
     Route: 048
  7. TS-1 [Suspect]
     Active Substance: GIMERACIL\OTERACIL\TEGAFUR
     Indication: RECTAL CANCER STAGE III
     Dosage: UNK
     Route: 048
  8. TOUGHMAC E [Concomitant]
     Active Substance: AMYLASE\LIPASE\PROTEASE
     Route: 048
  9. HARNAL [Concomitant]
     Active Substance: TAMSULOSIN HYDROCHLORIDE
     Route: 048
  10. AMLODIN [Suspect]
     Active Substance: AMLODIPINE BESYLATE
     Dosage: UNK
     Route: 048
  11. ARTIST [Concomitant]
     Active Substance: CARVEDILOL
     Route: 048
  12. SELBEX [Concomitant]
     Active Substance: TEPRENONE
     Route: 048

REACTIONS (2)
  - Toxic skin eruption [Recovering/Resolving]
  - Eosinophil count increased [Recovering/Resolving]
